FAERS Safety Report 7552241-2 (Version None)
Quarter: 2011Q2

REPORT INFORMATION
  Report Type: 
  Country: None (occurrence: None)
  Receive Date: 20110616
  Receipt Date: 20040603
  Transmission Date: 20111010
  Serious: Yes (Other)
  Sender: FDA-Public Use
  Company Number: PHHO2004JP08319

PATIENT
  Sex: Female

DRUGS (9)
  1. PURSENNID [Concomitant]
     Dosage: 36 MG, UNK
     Route: 048
  2. AMOBAN [Concomitant]
     Indication: SLEEP DISORDER
     Dosage: 7.5 MG, UNK
     Route: 048
     Dates: start: 20030221
  3. FAMOTIDINE [Concomitant]
     Indication: GASTRITIS
     Dosage: 20 MG, UNK
     Route: 048
     Dates: start: 20010322
  4. LOCHOLEST [Suspect]
     Dosage: 60 MG, QD
     Route: 048
     Dates: start: 20020809
  5. PURSENNID [Concomitant]
     Indication: CONSTIPATION
     Dosage: 24 MG, UNK
     Route: 048
     Dates: start: 20010322
  6. ALOSENN [Concomitant]
     Indication: CONSTIPATION
     Dosage: 1 MG, UNK
     Route: 048
     Dates: start: 20010322
  7. LOCHOLEST [Suspect]
     Indication: HYPERCHOLESTEROLAEMIA
     Dosage: 30 MG, QD
     Route: 048
     Dates: start: 20010419
  8. GLIMICRON [Concomitant]
     Indication: DIABETES MELLITUS
     Dosage: 20 MG, UNK
     Route: 048
     Dates: start: 20010405
  9. AMOBAN [Concomitant]
     Dosage: 10 MG, UNK
     Route: 048

REACTIONS (1)
  - GOITRE [None]
